FAERS Safety Report 17287823 (Version 1)
Quarter: 2020Q1

REPORT INFORMATION
  Report Type: Spontaneous
  Country: US (occurrence: US)
  Receive Date: 20200120
  Receipt Date: 20200120
  Transmission Date: 20200409
  Serious: Yes (Hospitalization)
  Sender: FDA-Public Use
  Company Number: US-STRIDES ARCOLAB LIMITED-2020SP000458

PATIENT
  Age: 58 Year
  Sex: Female

DRUGS (4)
  1. AZITHROMYCIN ANHYDROUS. [Suspect]
     Active Substance: AZITHROMYCIN ANHYDROUS
     Indication: ANTIBIOTIC THERAPY
     Dosage: UNK
     Route: 065
  2. AZITHROMYCIN ANHYDROUS. [Suspect]
     Active Substance: AZITHROMYCIN ANHYDROUS
     Indication: PNEUMONIA
  3. CEFTRIAXONE. [Suspect]
     Active Substance: CEFTRIAXONE
     Indication: ANTIBIOTIC THERAPY
     Dosage: UNK
     Route: 065
  4. METRONIDAZOLE. [Suspect]
     Active Substance: METRONIDAZOLE
     Indication: ANTIBIOTIC THERAPY
     Dosage: UNK
     Route: 065

REACTIONS (15)
  - Productive cough [Unknown]
  - Hyperhidrosis [Unknown]
  - Malaise [Unknown]
  - Tachycardia [Unknown]
  - Respiratory failure [Recovered/Resolved]
  - Paralysis [Unknown]
  - Altered state of consciousness [Unknown]
  - Dyspnoea [Unknown]
  - Urinary incontinence [Unknown]
  - Facial paresis [Recovered/Resolved]
  - Dysphagia [Recovered/Resolved]
  - Unresponsive to stimuli [Unknown]
  - Foaming at mouth [Unknown]
  - Myasthenia gravis [Recovered/Resolved]
  - Feeling hot [Unknown]
